FAERS Safety Report 17472424 (Version 1)
Quarter: 2020Q1

REPORT INFORMATION
  Report Type: Spontaneous
  Country: AR (occurrence: AR)
  Receive Date: 20200228
  Receipt Date: 20200228
  Transmission Date: 20200409
  Serious: Yes (Other)
  Sender: FDA-Public Use
  Company Number: PHHY2018AR041809

PATIENT
  Age: 57 Year
  Sex: Female

DRUGS (3)
  1. TOBRADEX [Suspect]
     Active Substance: DEXAMETHASONE\TOBRAMYCIN
     Indication: HORDEOLUM
     Dosage: 2 OR 3 TIMES A DAY
     Route: 047
     Dates: start: 2013
  2. ISOPTOMAX (ALC) [Suspect]
     Active Substance: DEXAMETHASONE\NEOMYCIN SULFATE\POLYMYXIN B SULFATE
     Indication: HORDEOLUM
     Dosage: 3.5 MG TWO OR THREE TIMES DAILY
     Route: 065
  3. TOBRAMYCIN. [Suspect]
     Active Substance: TOBRAMYCIN
     Indication: PRODUCT USED FOR UNKNOWN INDICATION
     Dosage: UNK
     Route: 047

REACTIONS (14)
  - Pain in extremity [Unknown]
  - Episcleritis [Recovered/Resolved]
  - Drug hypersensitivity [Unknown]
  - Dysphonia [Recovering/Resolving]
  - Malaise [Unknown]
  - Accident [Unknown]
  - Depressed mood [Unknown]
  - Herpes zoster [Not Recovered/Not Resolved]
  - Visual impairment [Unknown]
  - Cough [Unknown]
  - Hordeolum [Not Recovered/Not Resolved]
  - Hypoacusis [Unknown]
  - Amnesia [Unknown]
  - Feeling of despair [Recovering/Resolving]

NARRATIVE: CASE EVENT DATE: 2012
